FAERS Safety Report 9562446 (Version 1)
Quarter: 2013Q3

REPORT INFORMATION
  Report Type: Spontaneous
  Country: BR (occurrence: BR)
  Receive Date: 20130927
  Receipt Date: 20130927
  Transmission Date: 20140515
  Serious: Yes (Other)
  Sender: FDA-Public Use
  Company Number: BR-GLAXOSMITHKLINE-A1043008A

PATIENT
  Age: 38 Year
  Sex: Female
  Weight: 62 kg

DRUGS (1)
  1. AEROLIN [Suspect]
     Indication: ASTHMA
     Route: 065
     Dates: start: 201307, end: 201307

REACTIONS (2)
  - Angina pectoris [Recovered/Resolved]
  - Pain in extremity [Recovered/Resolved]
